FAERS Safety Report 12825379 (Version 1)
Quarter: 2016Q4

REPORT INFORMATION
  Report Type: Report from Study
  Country: CO (occurrence: CO)
  Receive Date: 20161006
  Receipt Date: 20161006
  Transmission Date: 20170207
  Serious: Yes (Life-Threatening, Hospitalization)
  Sender: FDA-Public Use
  Company Number: CO-B.I. PHARMACEUTICALS,INC./RIDGEFIELD-2015-BI-05147BI

PATIENT
  Age: 81 Year
  Sex: Female
  Weight: 48.5 kg

DRUGS (14)
  1. CARVEDILOL. [Concomitant]
     Active Substance: CARVEDILOL
     Route: 048
     Dates: start: 20150108, end: 20160113
  2. WARFARINE [Concomitant]
     Active Substance: WARFARIN
     Dosage: DOSE PER APPLICATION AND DAILY DOSE 5MG PLUS 2.5MG
     Route: 048
     Dates: start: 20151201, end: 20151204
  3. LANSOPRAZOLE. [Concomitant]
     Active Substance: LANSOPRAZOLE
     Indication: PROPHYLAXIS
     Route: 048
     Dates: start: 20150316, end: 20151130
  4. WARFARINE [Concomitant]
     Active Substance: WARFARIN
     Indication: ANTICOAGULANT THERAPY
     Route: 048
     Dates: start: 20120913
  5. WARFARINE [Concomitant]
     Active Substance: WARFARIN
     Route: 048
     Dates: start: 2015
  6. AMIODARONE [Concomitant]
     Active Substance: AMIODARONE
     Indication: ARRHYTHMIA
     Route: 048
     Dates: start: 20120221, end: 20151130
  7. LEVOTHYROXINE. [Concomitant]
     Active Substance: LEVOTHYROXINE
     Route: 048
     Dates: start: 20150316, end: 20160113
  8. WARFARINE [Concomitant]
     Active Substance: WARFARIN
     Route: 048
     Dates: start: 20160110, end: 20160113
  9. VITAMIN B12 [Concomitant]
     Active Substance: CYANOCOBALAMIN
     Indication: VITAMIN B12 DEFICIENCY
     Route: 048
     Dates: start: 20150108, end: 20151130
  10. BLINDED BI 1356 [Suspect]
     Active Substance: LINAGLIPTIN
     Indication: TYPE 2 DIABETES MELLITUS
     Route: 048
     Dates: start: 20121128, end: 20151122
  11. CLOPIDOGREL [Concomitant]
     Active Substance: CLOPIDOGREL BISULFATE
     Indication: CARDIOVASCULAR EVENT PROPHYLAXIS
     Route: 048
     Dates: start: 2005
  12. WARFARINE [Concomitant]
     Active Substance: WARFARIN
     Route: 048
     Dates: start: 2015, end: 20151130
  13. CARVEDILOL. [Concomitant]
     Active Substance: CARVEDILOL
     Indication: HYPERTENSION
     Route: 048
     Dates: start: 20150108, end: 20160113
  14. LEVOTHYROXINE. [Concomitant]
     Active Substance: LEVOTHYROXINE
     Indication: HYPOTHYROIDISM
     Route: 048

REACTIONS (4)
  - Head injury [Recovered/Resolved]
  - Renal failure [Not Recovered/Not Resolved]
  - Hypertensive crisis [Recovered/Resolved]
  - Irritable bowel syndrome [Recovered/Resolved]

NARRATIVE: CASE EVENT DATE: 20141218
